FAERS Safety Report 6643559-6 (Version None)
Quarter: 2010Q1

REPORT INFORMATION
  Report Type: 
  Country: None (occurrence: None)
  Receive Date: 20100320
  Receipt Date: 20100318
  Transmission Date: 20100710
  Serious: Yes (Life-Threatening, Hospitalization)
  Sender: FDA-Public Use
  Company Number: DE-B.I. PHARMACEUTICALS,INC./RIDGEFIELD-2010-DE-01732DE

PATIENT
  Age: 88 Year
  Sex: Female
  Weight: 66 kg

DRUGS (1)
  1. AGGRENOX [Suspect]
     Indication: CEREBRAL INFARCTION
     Dosage: 2 ANZ
     Route: 048
     Dates: start: 20090128, end: 20090207

REACTIONS (1)
  - ACUTE MYOCARDIAL INFARCTION [None]
